FAERS Safety Report 11668893 (Version 1)
Quarter: 2015Q4

REPORT INFORMATION
  Report Type: Spontaneous
  Country: US (occurrence: US)
  Receive Date: 20151027
  Receipt Date: 20151027
  Transmission Date: 20160304
  Serious: No
  Sender: FDA-Public Use
  Company Number: US-ELI_LILLY_AND_COMPANY-US201003002310

PATIENT
  Sex: Female

DRUGS (1)
  1. FORTEO [Suspect]
     Active Substance: TERIPARATIDE
     Indication: OSTEOPOROSIS
     Dosage: 20 UG, DAILY (1/D)
     Dates: start: 201001, end: 20100316

REACTIONS (12)
  - Abdominal discomfort [Unknown]
  - Abasia [Unknown]
  - Pain [Unknown]
  - Gastrointestinal pain [Unknown]
  - Bone pain [Unknown]
  - Myalgia [Unknown]
  - Back pain [Unknown]
  - Gait disturbance [Unknown]
  - Frustration [Unknown]
  - Quality of life decreased [Unknown]
  - Dysstasia [Unknown]
  - Pain in extremity [Unknown]

NARRATIVE: CASE EVENT DATE: 2010
